FAERS Safety Report 9247919 (Version 1)
Quarter: 2013Q1

REPORT INFORMATION
  Report Type: Spontaneous
  Country: US (occurrence: None)
  Receive Date: 20130305
  Receipt Date: 20130305
  Transmission Date: 20140127
  Serious: Yes (Other)
  Sender: FDA-Public Use
  Company Number: 163-21880-12101118

PATIENT
  Age: 59 Year
  Sex: Male

DRUGS (2)
  1. REVLIMID [Suspect]
     Indication: HODGKIN^S DISEASE
     Dosage: 25MG, 21 IN 28 D, PO
     Route: 048
     Dates: start: 201205, end: 20121008
  2. NEUPOGEN (FILGRASTIM) [Concomitant]

REACTIONS (1)
  - Muscle spasms [None]
